FAERS Safety Report 8448971-0 (Version None)
Quarter: 2012Q2

REPORT INFORMATION
  Report Type: 
  Country: None (occurrence: None)
  Receive Date: 20120611
  Receipt Date: 20120525
  Transmission Date: 20120825
  Serious: Yes (Death, Other)
  Sender: FDA-Public Use
  Company Number: JP-2012-15230

PATIENT
  Age: 63 Year
  Sex: Male
  Weight: 52 kg

DRUGS (21)
  1. ZOSYN (PIPERACILIN SODIUM, TAZOBACTAM SODIUM) [Concomitant]
  2. ISOSORBIDE DINITRATE [Concomitant]
  3. LASIX [Concomitant]
  4. FAMOTIDINE [Concomitant]
  5. MAGMITT (MAGNESIUM OXIDE) [Concomitant]
  6. CARVEDILOL [Concomitant]
  7. LQC-B (BIFIDOBACTERIUM LACTIS) [Concomitant]
  8. NITRODERM [Concomitant]
  9. VITAMIN PREPARATIONS (VITAMINS PREPARATIONS) [Concomitant]
  10. ZANTAC [Concomitant]
  11. ALDACTONE [Suspect]
     Indication: CARDIAC FAILURE
     Dosage: 25 MG MILLIGRAM(S), QD, ORAL
     Route: 048
     Dates: start: 20120509, end: 20120513
  12. LASIX [Suspect]
     Indication: CARDIAC FAILURE
     Dosage: 20 MG MILLIGRAM(S), QD, ORAL
     Route: 048
     Dates: start: 20120509, end: 20120513
  13. OMEPRAZOLE [Suspect]
     Dosage: INTRAVENOUS
     Route: 042
     Dates: start: 20120516
  14. HUMULIN R (INSUIN HUMAN) INJECTION [Suspect]
     Indication: HYPERGLYCAEMIA
     Dosage: SUBCUTANEOUS
     Route: 058
     Dates: start: 20120519
  15. PICILLIBACTA (AMPICILLIN SODIUM, SULBACTAM SODIUM) [Concomitant]
  16. MIYA BM (CLOSTRIDIUM BUTYRICUM) [Concomitant]
  17. IRON PREPARATIONS (IRON PREPARATIONS) [Concomitant]
  18. SAMSCA [Suspect]
     Indication: CARDIAC FAILURE
     Dosage: 15 MG MILLIGRAM(S), QD, ORAL
     Route: 048
     Dates: start: 20120511, end: 20120513
  19. HANP (CARPERITIDE) [Concomitant]
  20. GASLON N (IRSOGLADINE MALEATE) [Concomitant]
  21. BLOOD SUBSTITUTES (BLOOD SUBSTITUTES) [Concomitant]

REACTIONS (25)
  - CEREBRAL ARTERY EMBOLISM [None]
  - GENERALISED ERYTHEMA [None]
  - DEPRESSED LEVEL OF CONSCIOUSNESS [None]
  - HYPERNATRAEMIA [None]
  - DISSEMINATED INTRAVASCULAR COAGULATION [None]
  - MULTI-ORGAN FAILURE [None]
  - WHITE BLOOD CELL COUNT INCREASED [None]
  - HYPERGLYCAEMIA [None]
  - SOMNOLENCE [None]
  - DEMYELINATION [None]
  - HYPERHIDROSIS [None]
  - MALNUTRITION [None]
  - DIARRHOEA [None]
  - BLOOD UREA INCREASED [None]
  - GASTROINTESTINAL HAEMORRHAGE [None]
  - ANAPHYLACTIC SHOCK [None]
  - PRODUCTIVE COUGH [None]
  - PYREXIA [None]
  - MENTAL DISORDER [None]
  - THIRST [None]
  - BLOOD PRESSURE DECREASED [None]
  - ALTERED STATE OF CONSCIOUSNESS [None]
  - DEHYDRATION [None]
  - PLEURAL EFFUSION [None]
  - MELAENA [None]
